FAERS Safety Report 7632221-9 (Version None)
Quarter: 2011Q3

REPORT INFORMATION
  Report Type: 
  Country: None (occurrence: None)
  Receive Date: 20110725
  Receipt Date: 20100621
  Transmission Date: 20111222
  Serious: No
  Sender: FDA-Public Use
  Company Number: US-BRISTOL-MYERS SQUIBB COMPANY-15160120

PATIENT
  Age: 41 Year
  Sex: Female

DRUGS (4)
  1. PLAQUENIL [Concomitant]
  2. LAXATIVES [Concomitant]
     Dates: start: 20100501
  3. COUMADIN [Suspect]
     Dates: start: 20100607
  4. LOVENOX [Suspect]
     Indication: PULMONARY EMBOLISM
     Dates: start: 20100605

REACTIONS (3)
  - ABDOMINAL PAIN [None]
  - FLATULENCE [None]
  - DISCOMFORT [None]
